FAERS Safety Report 16482750 (Version 1)
Quarter: 2019Q2

REPORT INFORMATION
  Report Type: Report from Study
  Country: CO (occurrence: CO)
  Receive Date: 20190627
  Receipt Date: 20190627
  Transmission Date: 20190711
  Serious: Yes (Hospitalization)
  Sender: FDA-Public Use
  Company Number: PHHY2019CO143228

PATIENT
  Sex: Female
  Weight: 21 kg

DRUGS (1)
  1. JADENU [Suspect]
     Active Substance: DEFERASIROX
     Indication: THALASSAEMIA
     Dosage: 360 MG, QD
     Route: 048

REACTIONS (4)
  - Disease recurrence [Unknown]
  - Thalassaemia [Unknown]
  - Laboratory test abnormal [Unknown]
  - Product administered to patient of inappropriate age [Unknown]
